FAERS Safety Report 21273733 (Version 2)
Quarter: 2022Q3

REPORT INFORMATION
  Report Type: Spontaneous
  Country: BR (occurrence: BR)
  Receive Date: 20220831
  Receipt Date: 20220922
  Transmission Date: 20221026
  Serious: No
  Sender: FDA-Public Use
  Company Number: BR-VIIV HEALTHCARE LIMITED-BR2022AMR125338

PATIENT

DRUGS (2)
  1. DOLUTEGRAVIR [Suspect]
     Active Substance: DOLUTEGRAVIR
     Indication: HIV infection
     Dosage: 1 DF, QD
     Dates: start: 2014
  2. LAMIVUDINE\TENOFOVIR [Suspect]
     Active Substance: LAMIVUDINE\TENOFOVIR
     Indication: HIV infection
     Dosage: 1 DF, QD, (300 + 300)MG TABLETS
     Route: 048
     Dates: start: 2014

REACTIONS (8)
  - White blood cell count decreased [Unknown]
  - Monocyte count decreased [Unknown]
  - Basophil count decreased [Unknown]
  - Fatigue [Unknown]
  - Muscle fatigue [Unknown]
  - Hypoaesthesia [Unknown]
  - Pain in extremity [Unknown]
  - Muscular weakness [Unknown]

NARRATIVE: CASE EVENT DATE: 20220101
